FAERS Safety Report 9969688 (Version 1)
Quarter: 2014Q1

REPORT INFORMATION
  Report Type: Spontaneous
  Country: US (occurrence: None)
  Receive Date: 20140131
  Receipt Date: 20140131
  Transmission Date: 20141002
  Serious: Yes (Other)
  Sender: FDA-Public Use
  Company Number: 090686

PATIENT
  Age: 39 Year
  Sex: Male
  Weight: 37.2 kg

DRUGS (2)
  1. KEPPRA [Suspect]
     Indication: EPILEPSY
     Dosage: 500 MG, BID, STRENGTH:  500, 1 TABLET TWICE A DAY),
  2. TEGRETOL (TO UNKNOWN) [Concomitant]

REACTIONS (2)
  - Convulsion [None]
  - Nausea [None]
